FAERS Safety Report 17419449 (Version 1)
Quarter: 2020Q1

REPORT INFORMATION
  Report Type: Spontaneous
  Country: US (occurrence: US)
  Receive Date: 20200214
  Receipt Date: 20200214
  Transmission Date: 20200409
  Serious: Yes (Hospitalization)
  Sender: FDA-Public Use
  Company Number: None

PATIENT
  Age: 67 Year
  Sex: Female
  Weight: 102 kg

DRUGS (8)
  1. ZOLPIDEM [Concomitant]
     Active Substance: ZOLPIDEM TARTRATE
  2. ASPIRIN 81 MG [Concomitant]
     Active Substance: ASPIRIN
  3. ATENOLOL 50 MG [Concomitant]
     Active Substance: ATENOLOL
  4. CHLORTHALIDONE 50 MG [Concomitant]
  5. NALTREXONE [Suspect]
     Active Substance: NALTREXONE
     Indication: WEIGHT DECREASED
     Route: 048
  6. LISINOPRIL 40 MG [Concomitant]
     Active Substance: LISINOPRIL
  7. BUPROPION XL [Suspect]
     Active Substance: BUPROPION
     Indication: WEIGHT DECREASED
     Route: 048
  8. ROSUVASTATIN 10 MG [Concomitant]
     Active Substance: ROSUVASTATIN

REACTIONS (6)
  - Seizure [None]
  - Inappropriate antidiuretic hormone secretion [None]
  - Atrial fibrillation [None]
  - Hyponatraemia [None]
  - Lactic acidosis [None]
  - Hypokalaemia [None]

NARRATIVE: CASE EVENT DATE: 20190905
